FAERS Safety Report 6585340-2 (Version None)
Quarter: 2010Q1

REPORT INFORMATION
  Report Type: 
  Country: None (occurrence: None)
  Receive Date: 20100217
  Receipt Date: 20100210
  Transmission Date: 20100710
  Serious: Yes (Disabling, Other)
  Sender: FDA-Public Use
  Company Number: US-JNJFOC-20091001662

PATIENT
  Sex: Female

DRUGS (6)
  1. LEVAQUIN [Suspect]
     Indication: ANIMAL BITE
     Route: 048
     Dates: start: 20080320, end: 20080327
  2. LEVAQUIN [Suspect]
     Indication: PYREXIA
     Route: 048
     Dates: start: 20080320, end: 20080327
  3. LEVAQUIN [Suspect]
     Indication: ANIMAL SCRATCH
     Route: 048
     Dates: start: 20080320, end: 20080327
  4. CLINDAMYCIN [Suspect]
     Indication: ANIMAL BITE
     Route: 065
  5. AUGMENTIN [Concomitant]
     Route: 065
  6. CLAVULIN [Concomitant]

REACTIONS (4)
  - BURNING SENSATION [None]
  - NECK PAIN [None]
  - NEUROPATHY PERIPHERAL [None]
  - PAIN IN EXTREMITY [None]
